FAERS Safety Report 9594547 (Version 1)
Quarter: 2013Q4

REPORT INFORMATION
  Report Type: Spontaneous
  Country: US (occurrence: None)
  Receive Date: 20131002
  Receipt Date: 20131002
  Transmission Date: 20140711
  Serious: Yes (Other)
  Sender: FDA-Public Use
  Company Number: 2013-US-001234

PATIENT
  Age: 71 Year
  Sex: Female
  Weight: 62.1 kg

DRUGS (1)
  1. XYREM [Suspect]
     Indication: FIBROMYALGIA
     Route: 048
     Dates: start: 20101111

REACTIONS (4)
  - Optic neuritis [None]
  - Fatigue [None]
  - Depressed mood [None]
  - Paraesthesia [None]
